FAERS Safety Report 7289861-9 (Version None)
Quarter: 2011Q1

REPORT INFORMATION
  Report Type: 
  Country: None (occurrence: None)
  Receive Date: 20110214
  Receipt Date: 20110207
  Transmission Date: 20110831
  Serious: No
  Sender: FDA-Public Use
  Company Number: US-BIOGENIDEC-2011BI004844

PATIENT
  Sex: Female

DRUGS (1)
  1. AVONEX [Suspect]
     Indication: MULTIPLE SCLEROSIS
     Route: 030
     Dates: start: 20070305

REACTIONS (5)
  - VOMITING [None]
  - INSOMNIA [None]
  - STRESS [None]
  - MIGRAINE [None]
  - EMOTIONAL DISTRESS [None]
